FAERS Safety Report 18267488 (Version 4)
Quarter: 2020Q4

REPORT INFORMATION
  Report Type: Spontaneous
  Country: US (occurrence: US)
  Receive Date: 20200915
  Receipt Date: 20201128
  Transmission Date: 20210113
  Serious: Yes (Other)
  Sender: FDA-Public Use
  Company Number: US-LUPIN PHARMACEUTICALS INC.-2020-05870

PATIENT
  Age: 72 Year
  Sex: Female
  Weight: 98.87 kg

DRUGS (2)
  1. CEFUROXIME AXETIL TABLETS USP, 250 MG [Suspect]
     Active Substance: CEFUROXIME AXETIL
     Indication: ESCHERICHIA INFECTION
     Dosage: 500 MILLIGRAM, BID (2 X 250 MG TABLETS)
     Route: 048
     Dates: start: 20200903, end: 20200913
  2. CEFUROXIME AXETIL TABLETS USP, 500 MG [Suspect]
     Active Substance: CEFUROXIME AXETIL
     Indication: ESCHERICHIA INFECTION
     Dosage: UNK UNK, BID
     Route: 048
     Dates: start: 20200901, end: 20200902

REACTIONS (16)
  - Oropharyngeal pain [Not Recovered/Not Resolved]
  - Depression [Unknown]
  - Product size issue [Unknown]
  - Choking [Not Recovered/Not Resolved]
  - Confusional state [Unknown]
  - Wound [Unknown]
  - Ligament sprain [Unknown]
  - Fall [Unknown]
  - Somnolence [Unknown]
  - Fatigue [Unknown]
  - Drug ineffective [Unknown]
  - Product use complaint [Unknown]
  - Aphasia [Unknown]
  - Dizziness [Unknown]
  - Irritability [Unknown]
  - Balance disorder [Unknown]

NARRATIVE: CASE EVENT DATE: 20200903
